FAERS Safety Report 8664770 (Version 2)
Quarter: 2012Q4

REPORT INFORMATION
  Report Type: Report from Study
  Country: US (occurrence: US)
  Receive Date: 20120713
  Receipt Date: 20121101
  Transmission Date: 20130627
  Serious: Yes (Other)
  Sender: FDA-Public Use
  Company Number: US-US-EMD SERONO, INC.-7146293

PATIENT
  Sex: Female
  Weight: 55 kg

DRUGS (10)
  1. REBIF [Suspect]
     Indication: MULTIPLE SCLEROSIS
     Route: 058
     Dates: start: 20120314, end: 20120421
  2. REBIF [Suspect]
     Route: 058
     Dates: start: 20120608
  3. MIRENA [Concomitant]
     Indication: CONTRACEPTION
  4. FOLIC ACID [Concomitant]
     Indication: SUPPLEMENTATION THERAPY
     Route: 048
     Dates: start: 20110407
  5. GABAPENTIN [Concomitant]
     Indication: PAIN
     Route: 048
     Dates: start: 20121008
  6. NORCO [Concomitant]
     Indication: PRODUCT USED FOR UNKNOWN INDICATION
     Dates: start: 20120827
  7. IMITREX [Concomitant]
     Indication: MIGRAINE
     Route: 048
     Dates: start: 20120410
  8. EFFEXOR XR [Concomitant]
     Indication: DEPRESSION
     Route: 048
  9. TRAMADOL [Concomitant]
     Indication: PAIN IN EXTREMITY
     Dates: start: 20120802
  10. ALBUTEROL [Concomitant]
     Indication: PRODUCT USED FOR UNKNOWN INDICATION

REACTIONS (1)
  - Nephrolithiasis [Unknown]
